FAERS Safety Report 11069851 (Version 1)
Quarter: 2015Q2

REPORT INFORMATION
  Report Type: Report from Study
  Country: ZA (occurrence: ZA)
  Receive Date: 20150427
  Receipt Date: 20150427
  Transmission Date: 20150821
  Serious: Yes (Other)
  Sender: FDA-Public Use
  Company Number: ZA-ABBVIE-10P-143-0647810-00

PATIENT
  Age: 27 Year
  Sex: Female

DRUGS (2)
  1. KALETRA [Suspect]
     Active Substance: LOPINAVIR\RITONAVIR
     Indication: HIV INFECTION
     Dosage: 1 COURSE PRIOR TO CONCEPTION, EXPOSED SINCE FIRST TRIMESTER
     Route: 048
     Dates: start: 20051111
  2. TRUVADA [Concomitant]
     Active Substance: EMTRICITABINE\TENOFOVIR DISOPROXIL FUMARATE
     Indication: HIV INFECTION
     Dosage: 1 COURSE PRIOR TO CONCEPTION, EXPOSED SINCE FIRST TRIMESTER
     Route: 048
     Dates: start: 20051111

REACTIONS (1)
  - Abortion induced [Recovered/Resolved]

NARRATIVE: CASE EVENT DATE: 20090130
